FAERS Safety Report 10099365 (Version 2)
Quarter: 2014Q2

REPORT INFORMATION
  Report Type: Spontaneous
  Country: US (occurrence: US)
  Receive Date: 20140423
  Receipt Date: 20140423
  Transmission Date: 20141212
  Serious: Yes (Other)
  Sender: FDA-Public Use
  Company Number: US-GILEAD-2013-0070371

PATIENT
  Age: 27 Year
  Sex: Female

DRUGS (3)
  1. LETAIRIS [Suspect]
     Indication: PULMONARY HYPERTENSION
     Dosage: 10 MG, UNK
     Route: 048
     Dates: start: 20110503
  2. LETAIRIS [Suspect]
     Indication: HEART DISEASE CONGENITAL
  3. TADALAFIL [Concomitant]

REACTIONS (4)
  - Anaemia [Recovered/Resolved]
  - Menorrhagia [Unknown]
  - Dizziness [Unknown]
  - Asthenia [Unknown]
